FAERS Safety Report 12743877 (Version 2)
Quarter: 2016Q4

REPORT INFORMATION
  Report Type: Report from Study
  Country: US (occurrence: US)
  Receive Date: 20160914
  Receipt Date: 20161003
  Transmission Date: 20170207
  Serious: Yes (Death, Hospitalization, Other)
  Sender: FDA-Public Use
  Company Number: US-ALEXION PHARMACEUTICALS INC.-A201606721

PATIENT
  Sex: Female

DRUGS (1)
  1. SOLIRIS [Suspect]
     Active Substance: ECULIZUMAB
     Indication: HAEMOLYTIC URAEMIC SYNDROME
     Dosage: UNK
     Route: 042

REACTIONS (9)
  - Metastases to abdominal cavity [Not Recovered/Not Resolved]
  - Metastases to liver [Not Recovered/Not Resolved]
  - Malignant neoplasm progression [Fatal]
  - Renal impairment [Not Recovered/Not Resolved]
  - Weight decreased [Unknown]
  - Malaise [Unknown]
  - Fatigue [Not Recovered/Not Resolved]
  - Eating disorder [Unknown]
  - Dyspepsia [Unknown]

NARRATIVE: CASE EVENT DATE: 20160908
